FAERS Safety Report 7668551-4 (Version None)
Quarter: 2011Q3

REPORT INFORMATION
  Report Type: 
  Country: None (occurrence: None)
  Receive Date: 20110808
  Receipt Date: 20110725
  Transmission Date: 20111222
  Serious: Yes (Other)
  Sender: FDA-Public Use
  Company Number: TW-CELGENEUS-153-50794-11070048

PATIENT
  Sex: Female
  Weight: 45.9 kg

DRUGS (1)
  1. VIDAZA [Suspect]
     Indication: MYELODYSPLASTIC SYNDROME
     Route: 050
     Dates: start: 20110425

REACTIONS (3)
  - BACTERIAL INFECTION [None]
  - MALAISE [None]
  - SKIN NECROSIS [None]
